FAERS Safety Report 4469370-2 (Version None)
Quarter: 2004Q4

REPORT INFORMATION
  Report Type: 
  Country: None (occurrence: None)
  Receive Date: 20041008
  Receipt Date: 20040319
  Transmission Date: 20050328
  Serious: No
  Sender: FDA-Public Use
  Company Number: US-BRISTOL-MYERS SQUIBB COMPANY-12538856

PATIENT
  Age: 70 Year
  Sex: Female
  Weight: 93 kg

DRUGS (4)
  1. AVAPRO [Suspect]
     Indication: BLOOD PRESSURE SYSTOLIC INCREASED
     Route: 048
  2. ATENOLOL [Concomitant]
  3. HYDROCHLOROTHIAZIDE [Concomitant]
  4. LEVOXYL [Concomitant]

REACTIONS (1)
  - HYPOTRICHOSIS [None]
